FAERS Safety Report 12675176 (Version 1)
Quarter: 2016Q3

REPORT INFORMATION
  Report Type: Other
  Country: DE (occurrence: DE)
  Receive Date: 20160823
  Receipt Date: 20160823
  Transmission Date: 20161109
  Serious: Yes (Death, Hospitalization)
  Sender: FDA-Public Use
  Company Number: DE-GLENMARK GENERICS (EUROPE) LTD-2016GMK024013

PATIENT

DRUGS (1)
  1. METFORMIN [Suspect]
     Active Substance: METFORMIN HYDROCHLORIDE
     Indication: DIABETES MELLITUS
     Dosage: 1000 MG, BID
     Route: 048
     Dates: start: 20160713, end: 20160812

REACTIONS (5)
  - Diarrhoea [Unknown]
  - Cardiac arrest [Unknown]
  - Melaena [Unknown]
  - Coma [Unknown]
  - Lactic acidosis [Fatal]

NARRATIVE: CASE EVENT DATE: 201608
